FAERS Safety Report 19475993 (Version 2)
Quarter: 2021Q3

REPORT INFORMATION
  Report Type: Spontaneous
  Country: DE (occurrence: DE)
  Receive Date: 20210630
  Receipt Date: 20210722
  Transmission Date: 20211014
  Serious: Yes (Hospitalization, Other)
  Sender: FDA-Public Use
  Company Number: DE-B.I. PHARMACEUTICALS,INC./RIDGEFIELD-2021-BI-111433

PATIENT
  Age: 49 Year
  Sex: Female

DRUGS (2)
  1. JARDIANCE [Suspect]
     Active Substance: EMPAGLIFLOZIN
     Indication: TYPE 2 DIABETES MELLITUS
     Dosage: 25 MG 1XDAY IN THE MORNING
     Route: 048
  2. JANUMET [Concomitant]
     Active Substance: METFORMIN HYDROCHLORIDE\SITAGLIPTIN PHOSPHATE
     Indication: TYPE 2 DIABETES MELLITUS
     Dosage: 50/1000

REACTIONS (8)
  - Blood insulin abnormal [Recovered/Resolved]
  - Vomiting [Recovered/Resolved]
  - Blood glucose abnormal [Recovered/Resolved]
  - Blood ketone body [Recovered/Resolved]
  - Blood insulin decreased [Recovered/Resolved]
  - Nausea [Recovered/Resolved]
  - Euglycaemic diabetic ketoacidosis [Recovered/Resolved]
  - Blood pH abnormal [Recovered/Resolved]

NARRATIVE: CASE EVENT DATE: 20210505
